FAERS Safety Report 6404707-6 (Version None)
Quarter: 2009Q4

REPORT INFORMATION
  Report Type: 
  Country: None (occurrence: None)
  Receive Date: 20091016
  Receipt Date: 20091005
  Transmission Date: 20100525
  Serious: Yes (Other)
  Sender: FDA-Public Use
  Company Number: BR-JNJFOC-20091003565

PATIENT
  Age: 3 Year
  Sex: Male

DRUGS (2)
  1. MYLICON GOTAS [Suspect]
     Dosage: DRANK 1 ^FLASK^ ON 3-OCT-2009.
     Route: 048
  2. MYLICON GOTAS [Suspect]
     Indication: FLATULENCE
     Dosage: DRANK 1 ^FLASK^
     Route: 048

REACTIONS (2)
  - ACCIDENTAL DRUG INTAKE BY CHILD [None]
  - ACCIDENTAL OVERDOSE [None]
